FAERS Safety Report 9663046 (Version 1)
Quarter: 2013Q4

REPORT INFORMATION
  Report Type: Report from Study
  Country: LB (occurrence: LB)
  Receive Date: 20131031
  Receipt Date: 20131031
  Transmission Date: 20140711
  Serious: Yes (Hospitalization, Disabling)
  Sender: FDA-Public Use
  Company Number: LB-SA-2013SA109856

PATIENT
  Age: 83 Year
  Sex: Male

DRUGS (7)
  1. LANTUS SOLOSTAR [Suspect]
     Indication: DIABETES MELLITUS
     Dosage: DOSE: 26-30 UNITS
     Route: 058
  2. DAFLON [Concomitant]
     Route: 048
  3. TAMSULOSIN [Concomitant]
     Route: 048
  4. ZOLOFT [Concomitant]
     Route: 048
  5. LASIX [Concomitant]
     Route: 048
  6. CALCIUM CARBONATE/MAGNESIUM CARBONATE/MENTHA X PIPERITA OIL [Concomitant]
     Route: 048
  7. SOLOSTAR [Concomitant]

REACTIONS (1)
  - Hip fracture [Not Recovered/Not Resolved]
